FAERS Safety Report 13319561 (Version 19)
Quarter: 2024Q2

REPORT INFORMATION
  Report Type: Report from Study
  Country: FR (occurrence: FR)
  Receive Date: 20170310
  Receipt Date: 20240624
  Transmission Date: 20240716
  Serious: Yes (Hospitalization, Other)
  Sender: FDA-Public Use
  Company Number: PHHY2017FR036980

PATIENT
  Age: 54 Year
  Sex: Female
  Weight: 65 kg

DRUGS (18)
  1. GILENYA [Suspect]
     Active Substance: FINGOLIMOD HYDROCHLORIDE
     Indication: Relapsing-remitting multiple sclerosis
     Dosage: UNK
     Route: 065
     Dates: start: 20160901, end: 20170305
  2. GILENYA [Suspect]
     Active Substance: FINGOLIMOD HYDROCHLORIDE
     Dosage: UNK
     Route: 065
     Dates: start: 20160901, end: 20170306
  3. GILENYA [Suspect]
     Active Substance: FINGOLIMOD HYDROCHLORIDE
     Dosage: UNK
     Route: 065
     Dates: start: 20170310
  4. AMLODIPINE BESYLATE [Suspect]
     Active Substance: AMLODIPINE BESYLATE
     Indication: Product used for unknown indication
     Dosage: 5 MG, QD
     Route: 065
     Dates: start: 2017
  5. DALFAMPRIDINE [Suspect]
     Active Substance: DALFAMPRIDINE
     Indication: Multiple sclerosis
     Dosage: UNK, QD
     Route: 048
     Dates: start: 201609, end: 20170301
  6. DALFAMPRIDINE [Suspect]
     Active Substance: DALFAMPRIDINE
     Dosage: 1 DF, QD
     Route: 048
     Dates: start: 20170310
  7. DALFAMPRIDINE [Suspect]
     Active Substance: DALFAMPRIDINE
     Dosage: 1 DF
     Route: 048
     Dates: start: 20170301
  8. DALFAMPRIDINE [Suspect]
     Active Substance: DALFAMPRIDINE
     Dosage: UNK
     Route: 048
  9. DALFAMPRIDINE [Suspect]
     Active Substance: DALFAMPRIDINE
     Dosage: 1 DF
     Route: 048
     Dates: start: 201609, end: 20170301
  10. DALFAMPRIDINE [Suspect]
     Active Substance: DALFAMPRIDINE
     Dosage: UNK
     Route: 065
  11. ZOPICLONE [Suspect]
     Active Substance: ZOPICLONE
     Indication: Product used for unknown indication
     Dosage: 1 DOSAGE FORM, QD (UG/LITRE)
     Route: 065
     Dates: start: 2017
  12. BACLOFEN [Suspect]
     Active Substance: BACLOFEN
     Indication: Product used for unknown indication
     Dosage: 6 DF (DOSE OF 10 MG), QD
     Route: 065
     Dates: start: 201703
  13. ASPIRIN [Suspect]
     Active Substance: ASPIRIN
     Indication: Product used for unknown indication
     Dosage: 75 MG, QD
     Route: 065
     Dates: start: 2017
  14. LEVOTHYROXINE [Suspect]
     Active Substance: LEVOTHYROXINE\LEVOTHYROXINE SODIUM
     Indication: Product used for unknown indication
     Dosage: 125 ?G, QD
     Route: 065
     Dates: start: 20161214
  15. NADROPARIN CALCIUM [Suspect]
     Active Substance: NADROPARIN CALCIUM
     Indication: Product used for unknown indication
     Dosage: 2850 IU, QD
     Route: 065
     Dates: start: 20170221
  16. NADROPARIN [Suspect]
     Active Substance: NADROPARIN
     Indication: Product used for unknown indication
     Dosage: 2850 DOSAGE FORM, QD (2850 IU)
     Route: 065
     Dates: start: 20170221
  17. NADROPARIN [Suspect]
     Active Substance: NADROPARIN
     Dosage: 2850 IU, QD
     Route: 065
     Dates: start: 20170221
  18. AMLODIPINE BESYLATE [Suspect]
     Active Substance: AMLODIPINE BESYLATE
     Indication: Product used for unknown indication
     Dosage: 5 MG, QD
     Route: 065
     Dates: start: 2017

REACTIONS (13)
  - Cerebrovascular accident [Recovered/Resolved with Sequelae]
  - Cerebral thrombosis [Recovered/Resolved with Sequelae]
  - Paralysis [Not Recovered/Not Resolved]
  - Hemiplegia [Recovering/Resolving]
  - Motor dysfunction [Unknown]
  - Muscular weakness [Unknown]
  - Anosognosia [Unknown]
  - Dysphagia [Recovering/Resolving]
  - Dysarthria [Not Recovered/Not Resolved]
  - Hypoaesthesia [Not Recovered/Not Resolved]
  - Fall [Recovered/Resolved]
  - Femur fracture [Not Recovered/Not Resolved]
  - Femoral neck fracture [Not Recovered/Not Resolved]

NARRATIVE: CASE EVENT DATE: 20161206
